FAERS Safety Report 24412183 (Version 1)
Quarter: 2024Q4

REPORT INFORMATION
  Report Type: Spontaneous
  Country: US (occurrence: US)
  Receive Date: 20241008
  Receipt Date: 20241008
  Transmission Date: 20250114
  Serious: No
  Sender: AMGEN
  Company Number: US-AMGEN-USASP2024197153

PATIENT
  Age: 74 Year
  Sex: Female

DRUGS (6)
  1. AIMOVIG [Suspect]
     Active Substance: ERENUMAB-AOOE
     Indication: Migraine
     Dosage: 140 MILLIGRAM, QMO
     Route: 058
  2. AJOVY [Concomitant]
     Active Substance: FREMANEZUMAB-VFRM
     Indication: Migraine
     Route: 058
  3. AJOVY [Concomitant]
     Active Substance: FREMANEZUMAB-VFRM
     Indication: Product used for unknown indication
     Route: 058
  4. AJOVY [Concomitant]
     Active Substance: FREMANEZUMAB-VFRM
     Route: 058
  5. AJOVY [Concomitant]
     Active Substance: FREMANEZUMAB-VFRM
     Route: 058
  6. UBRELVY [Concomitant]
     Active Substance: UBROGEPANT
     Indication: Migraine

REACTIONS (2)
  - Device difficult to use [Unknown]
  - Therapy interrupted [Unknown]

NARRATIVE: CASE EVENT DATE: 20241001
